FAERS Safety Report 19693298 (Version 3)
Quarter: 2021Q3

REPORT INFORMATION
  Report Type: Spontaneous
  Country: BR (occurrence: BR)
  Receive Date: 20210813
  Receipt Date: 20210928
  Transmission Date: 20211014
  Serious: Yes (Other)
  Sender: FDA-Public Use
  Company Number: BR-ORION CORPORATION ORION PHARMA-ENTC2021-0201

PATIENT
  Age: 80 Year
  Sex: Female
  Weight: 93 kg

DRUGS (3)
  1. STALEVO [Suspect]
     Active Substance: CARBIDOPA\ENTACAPONE\LEVODOPA
     Dosage: STRENGTH: 100 MG
     Route: 065
  2. STALEVO [Suspect]
     Active Substance: CARBIDOPA\ENTACAPONE\LEVODOPA
     Indication: PARKINSON^S DISEASE
     Route: 065
  3. STALEVO [Suspect]
     Active Substance: CARBIDOPA\ENTACAPONE\LEVODOPA
     Dosage: STRENGTH: 100 MG, 1 DF IN THE MEALS
     Route: 048

REACTIONS (8)
  - Nervousness [Unknown]
  - Memory impairment [Unknown]
  - Bone pain [Not Recovered/Not Resolved]
  - Drug dependence [Unknown]
  - Poor peripheral circulation [Not Recovered/Not Resolved]
  - Malaise [Not Recovered/Not Resolved]
  - Femur fracture [Not Recovered/Not Resolved]
  - Fall [Recovered/Resolved]

NARRATIVE: CASE EVENT DATE: 2017
